FAERS Safety Report 19097467 (Version 1)
Quarter: 2021Q2

REPORT INFORMATION
  Report Type: Report from Study
  Country: None (occurrence: US)
  Receive Date: 20210406
  Receipt Date: 20210406
  Transmission Date: 20210717
  Serious: Yes (Other)
  Sender: FDA-Public Use
  Company Number: US-ABBVIE-21P-163-3841077-00

PATIENT
  Age: 35 Year
  Sex: Male
  Weight: 77.5 kg

DRUGS (9)
  1. VENETOCLAX. [Suspect]
     Active Substance: VENETOCLAX
     Dosage: C3, D22?28
     Route: 048
  2. OBINUTUZUMAB. [Concomitant]
     Active Substance: OBINUTUZUMAB
     Dosage: C1, D2
     Route: 042
  3. VENETOCLAX. [Suspect]
     Active Substance: VENETOCLAX
     Indication: CHRONIC LYMPHOCYTIC LEUKAEMIA
     Dosage: C3, D1?78
     Route: 048
  4. VENETOCLAX. [Suspect]
     Active Substance: VENETOCLAX
     Dosage: C4?14
     Route: 048
     Dates: end: 20201218
  5. OBINUTUZUMAB. [Concomitant]
     Active Substance: OBINUTUZUMAB
     Dosage: C1, D8+15; C2?6, D1
     Route: 042
     Dates: end: 20201001
  6. VENETOCLAX. [Suspect]
     Active Substance: VENETOCLAX
     Dosage: C3, D15?21
     Route: 048
  7. IBRUTINIB [Suspect]
     Active Substance: IBRUTINIB
     Indication: CHRONIC LYMPHOCYTIC LEUKAEMIA
     Route: 048
     Dates: start: 20200513, end: 20201217
  8. VENETOCLAX. [Suspect]
     Active Substance: VENETOCLAX
     Dosage: C3, D8?14
     Route: 048
  9. OBINUTUZUMAB. [Concomitant]
     Active Substance: OBINUTUZUMAB
     Indication: CHRONIC LYMPHOCYTIC LEUKAEMIA
     Dosage: C1, D1
     Route: 042
     Dates: start: 20200513

REACTIONS (3)
  - Bacteraemia [Recovered/Resolved with Sequelae]
  - SARS-CoV-2 test [Recovered/Resolved with Sequelae]
  - Pneumonia [Recovered/Resolved with Sequelae]

NARRATIVE: CASE EVENT DATE: 20201216
